FAERS Safety Report 6051342-8 (Version None)
Quarter: 2009Q1

REPORT INFORMATION
  Report Type: 
  Country: None (occurrence: None)
  Receive Date: 20090126
  Receipt Date: 20090120
  Transmission Date: 20090719
  Serious: No
  Sender: FDA-Public Use
  Company Number: US-BAYER-200840699NA

PATIENT
  Age: 41 Year
  Sex: Female

DRUGS (7)
  1. AVELOX [Suspect]
     Indication: PNEUMONIA KLEBSIELLA
     Dosage: TOTAL DAILY DOSE: 400 MG  UNIT DOSE: 400 MG
     Dates: start: 20081119, end: 20081129
  2. TORADOL [Suspect]
  3. MOTRIN [Suspect]
  4. MOTRIN [Concomitant]
  5. TORADOL [Concomitant]
  6. RITALIN [Concomitant]
     Dosage: TOTAL DAILY DOSE: 60 MG
  7. XANAX [Concomitant]

REACTIONS (7)
  - ABDOMINAL PAIN UPPER [None]
  - ANXIETY [None]
  - DIARRHOEA [None]
  - DYSPHAGIA [None]
  - FATIGUE [None]
  - HALLUCINATION [None]
  - MEMORY IMPAIRMENT [None]
